FAERS Safety Report 17678827 (Version 2)
Quarter: 2020Q2

REPORT INFORMATION
  Report Type: Spontaneous
  Country: GB (occurrence: GB)
  Receive Date: 20200417
  Receipt Date: 20200508
  Transmission Date: 20200714
  Serious: Yes (Hospitalization, Other)
  Sender: FDA-Public Use
  Company Number: GB-AUROBINDO-AUR-APL-2020-016459

PATIENT
  Age: 4 Year
  Sex: Male

DRUGS (9)
  1. AMBISOME [Concomitant]
     Active Substance: AMPHOTERICIN B
     Indication: FUNGAL INFECTION
     Dosage: UNK (WAS ADDED TO HIS CURRENT ANTIFUNGAL THERAPY) (DAY 70 COMMENCED)  (STOPPED ON DAY 182)
     Route: 065
  2. MICAFUNGIN. [Concomitant]
     Active Substance: MICAFUNGIN SODIUM
     Indication: HEPATOSPLENIC CANDIDIASIS
     Dosage: UNK (VORICONAZOLE WITH MICAFUNGIN) (ON DAY 37)
     Route: 065
  3. VINCRISTINE SULFATE. [Interacting]
     Active Substance: VINCRISTINE SULFATE
     Indication: ACUTE LYMPHOCYTIC LEUKAEMIA
     Dosage: UNK (HALF DOSE)
     Route: 065
  4. PREDNISOLONE. [Concomitant]
     Active Substance: PREDNISOLONE
     Indication: FUNGAL INFECTION
     Dosage: 1 MILLIGRAM/KILOGRAM
     Route: 065
  5. VORICONAZOLE. [Suspect]
     Active Substance: VORICONAZOLE
     Indication: HEPATOSPLENIC CANDIDIASIS
     Dosage: UNK (WITH MICAFUNGIN) (ON DAY 37 STARTED AND DAY 100 STOPPED)
     Route: 065
  6. FLUCYTOSINE. [Concomitant]
     Active Substance: FLUCYTOSINE
     Indication: ANTIFUNGAL TREATMENT
  7. FLUCYTOSINE. [Concomitant]
     Active Substance: FLUCYTOSINE
     Indication: FUNGAL INFECTION
     Dosage: UNK (DAY 91 COMMENCED) (STOPPED ON DAY 182)
     Route: 065
  8. DEXAMETHASONE. [Concomitant]
     Active Substance: DEXAMETHASONE
     Indication: ACUTE LYMPHOCYTIC LEUKAEMIA
     Dosage: UNK
     Route: 065
  9. ASPARAGINASE [Concomitant]
     Active Substance: ASPARAGINASE
     Indication: ACUTE LYMPHOCYTIC LEUKAEMIA
     Dosage: UNK
     Route: 065

REACTIONS (10)
  - Hepatosplenic candidiasis [Recovered/Resolved]
  - Drug interaction [Unknown]
  - Drug level below therapeutic [Unknown]
  - Abdominal distension [Unknown]
  - Immune reconstitution inflammatory syndrome [Recovering/Resolving]
  - Ileus [Unknown]
  - Drug ineffective [Unknown]
  - Labelled drug-drug interaction medication error [Unknown]
  - Autonomic neuropathy [Unknown]
  - Fungal infection [Recovered/Resolved]
